FAERS Safety Report 8053684-3 (Version None)
Quarter: 2012Q1

REPORT INFORMATION
  Report Type: 
  Country: None (occurrence: None)
  Receive Date: 20120118
  Receipt Date: 20120111
  Transmission Date: 20120608
  Serious: Yes (Other)
  Sender: FDA-Public Use
  Company Number: US-US-EMD SERONO, INC.-7097206

PATIENT
  Sex: Female

DRUGS (2)
  1. NAPROXEN (ALEVE) [Concomitant]
  2. REBIF [Suspect]
     Indication: PRODUCT USED FOR UNKNOWN INDICATION
     Route: 058
     Dates: start: 20110912

REACTIONS (10)
  - HEADACHE [None]
  - LOSS OF CONSCIOUSNESS [None]
  - HEAD INJURY [None]
  - CONCUSSION [None]
  - DIZZINESS [None]
  - VERTIGO [None]
  - DIPLOPIA [None]
  - FALL [None]
  - INJECTION SITE ERYTHEMA [None]
  - INJECTION SITE HAEMATOMA [None]
